FAERS Safety Report 5034716-3 (Version None)
Quarter: 2006Q2

REPORT INFORMATION
  Report Type: 
  Country: None (occurrence: None)
  Receive Date: 20060621
  Receipt Date: 20060608
  Transmission Date: 20061013
  Serious: Yes (Hospitalization)
  Sender: FDA-Public Use
  Company Number: 14232

PATIENT
  Sex: Female
  Weight: 3.89 kg

DRUGS (1)
  1. ATRACURIUM [Suspect]
     Dosage: 10 MG ONCE IM
     Route: 030
     Dates: start: 20021129, end: 20021129

REACTIONS (11)
  - BLOOD CREATINE PHOSPHOKINASE INCREASED [None]
  - BRADYCARDIA NEONATAL [None]
  - CYANOSIS NEONATAL [None]
  - DEVELOPMENTAL DELAY [None]
  - HYPERGLYCAEMIA [None]
  - INCORRECT ROUTE OF DRUG ADMINISTRATION [None]
  - INFANTILE APNOEIC ATTACK [None]
  - NEONATAL DISORDER [None]
  - NEONATAL RESPIRATORY FAILURE [None]
  - PARALYSIS FLACCID [None]
  - WRONG DRUG ADMINISTERED [None]
